FAERS Safety Report 13268782 (Version 1)
Quarter: 2017Q1

REPORT INFORMATION
  Report Type: Spontaneous
  Country: US (occurrence: US)
  Receive Date: 20170224
  Receipt Date: 20170224
  Transmission Date: 20170428
  Serious: Yes (Other)
  Sender: FDA-Public Use
  Company Number: US-ELI_LILLY_AND_COMPANY-US201607008808

PATIENT
  Sex: Male
  Weight: 106.58 kg

DRUGS (2)
  1. CYMBALTA [Suspect]
     Active Substance: DULOXETINE HYDROCHLORIDE
     Dosage: 120 MG, BID
     Route: 065
  2. CYMBALTA [Suspect]
     Active Substance: DULOXETINE HYDROCHLORIDE
     Indication: PRODUCT USED FOR UNKNOWN INDICATION
     Dosage: 60 MG, UNKNOWN
     Route: 065

REACTIONS (13)
  - Overdose [Unknown]
  - Drug withdrawal syndrome [Unknown]
  - Insomnia [Unknown]
  - Anxiety [Unknown]
  - Confusional state [Unknown]
  - Suicide attempt [Unknown]
  - Drug prescribing error [Unknown]
  - Fatigue [Unknown]
  - Headache [Unknown]
  - Suicidal ideation [Unknown]
  - Dysphoria [Unknown]
  - Affect lability [Unknown]
  - Dizziness [Unknown]
